FAERS Safety Report 19153356 (Version 1)
Quarter: 2021Q2

REPORT INFORMATION
  Report Type: Spontaneous
  Country: US (occurrence: US)
  Receive Date: 20210419
  Receipt Date: 20210419
  Transmission Date: 20210717
  Serious: No
  Sender: FDA-Public Use
  Company Number: US-SA-2021SA124542

PATIENT
  Age: 65 Year
  Sex: Female

DRUGS (1)
  1. ALLEGRA?D 24 HOUR [Suspect]
     Active Substance: FEXOFENADINE HYDROCHLORIDE\PSEUDOEPHEDRINE HYDROCHLORIDE
     Indication: DERMATITIS ALLERGIC
     Dosage: DRUG STRUCTURE DOSAGE : 180 MG DRUG INTERVAL DOSAGE : DAILY DRUG TREATMENT DURATION: MORE THAN 6 MON

REACTIONS (1)
  - Product odour abnormal [Unknown]
